FAERS Safety Report 16117803 (Version 1)
Quarter: 2019Q1

REPORT INFORMATION
  Report Type: Spontaneous
  Country: US (occurrence: US)
  Receive Date: 20190326
  Receipt Date: 20190326
  Transmission Date: 20190418
  Serious: No
  Sender: FDA-Public Use
  Company Number: US-ELI_LILLY_AND_COMPANY-US201903000365

PATIENT
  Sex: Female

DRUGS (6)
  1. EMGALITY [Suspect]
     Active Substance: GALCANEZUMAB-GNLM
     Indication: MIGRAINE
     Dosage: UNK UNK, UNKNOWN
     Route: 065
     Dates: start: 20190221
  2. IMITREX [SUMATRIPTAN SUCCINATE] [Concomitant]
     Indication: MIGRAINE
     Dosage: UNK, UNKNOWN
     Route: 065
  3. ZOMIG [Concomitant]
     Active Substance: ZOLMITRIPTAN
     Indication: MIGRAINE
     Dosage: UNK, UNKNOWN
     Route: 065
  4. ATIVAN [Concomitant]
     Active Substance: LORAZEPAM
     Indication: DEPRESSION
     Dosage: UNK, UNKNOWN
     Route: 065
  5. SEROQUEL [Concomitant]
     Active Substance: QUETIAPINE FUMARATE
     Indication: DEPRESSION
     Dosage: UNK, PRN
     Route: 065
  6. WELLBUTRIN [Concomitant]
     Active Substance: BUPROPION HYDROCHLORIDE
     Indication: PRODUCT USED FOR UNKNOWN INDICATION
     Dosage: UNK, UNKNOWN
     Route: 065

REACTIONS (6)
  - Depression [Unknown]
  - Aphthous ulcer [Not Recovered/Not Resolved]
  - Injection site pain [Recovered/Resolved]
  - Migraine [Unknown]
  - Injection site induration [Unknown]
  - Injection site haemorrhage [Unknown]

NARRATIVE: CASE EVENT DATE: 20190221
